FAERS Safety Report 4712584-4 (Version None)
Quarter: 2005Q3

REPORT INFORMATION
  Report Type: 
  Country: None (occurrence: None)
  Receive Date: 20050711
  Receipt Date: 20050426
  Transmission Date: 20060218
  Serious: Yes (Hospitalization)
  Sender: FDA-Public Use
  Company Number: 2005096536

PATIENT
  Age: 32 Year
  Sex: Female

DRUGS (1)
  1. BEXTRA [Suspect]
     Indication: URINARY TRACT INFECTION
     Dosage: 40 MG (40 MG, 1 IN 1 D), ORAL
     Route: 048
     Dates: start: 20050401, end: 20050401

REACTIONS (2)
  - HEAT RASH [None]
  - THROAT IRRITATION [None]
